FAERS Safety Report 4654360-7 (Version None)
Quarter: 2005Q2

REPORT INFORMATION
  Report Type: 
  Country: None (occurrence: None)
  Receive Date: 20050404
  Receipt Date: 20041229
  Transmission Date: 20051028
  Serious: No
  Sender: FDA-Public Use
  Company Number: USA041287096

PATIENT
  Age: 32 Year
  Sex: Female

DRUGS (4)
  1. CYMBALTA [Suspect]
     Indication: DEPRESSION
  2. MICROGESTIN FE [Concomitant]
  3. XANAX (ALPRAZOLAM DUM) [Concomitant]
  4. CIPRO (CIPROFOXACIN HYDROCHLORIDE) [Concomitant]

REACTIONS (3)
  - BACK PAIN [None]
  - BLOOD URINE [None]
  - URINARY TRACT INFECTION [None]
